FAERS Safety Report 6620476-9 (Version None)
Quarter: 2010Q1

REPORT INFORMATION
  Report Type: 
  Country: None (occurrence: None)
  Receive Date: 20100308
  Receipt Date: 20100308
  Transmission Date: 20100710
  Serious: No
  Sender: FDA-Public Use
  Company Number: None

PATIENT
  Sex: Female

DRUGS (2)
  1. APTIVUS [Suspect]
     Indication: HIV INFECTION
     Dosage: 500MG BID PO
     Route: 048
     Dates: start: 20071215, end: 20091210
  2. NORVIR [Suspect]
     Indication: HIV INFECTION
     Dosage: 200MG BID PO
     Route: 048
     Dates: start: 20071215, end: 20091210

REACTIONS (2)
  - ALANINE AMINOTRANSFERASE INCREASED [None]
  - ASPARTATE AMINOTRANSFERASE INCREASED [None]
